FAERS Safety Report 17313546 (Version 1)
Quarter: 2020Q1

REPORT INFORMATION
  Report Type: Spontaneous
  Country: PT (occurrence: PT)
  Receive Date: 20200124
  Receipt Date: 20200124
  Transmission Date: 20200409
  Serious: Yes (Other)
  Sender: FDA-Public Use
  Company Number: PT-AMGEN-PRTSP2020011461

PATIENT
  Age: 33 Year
  Sex: Female

DRUGS (1)
  1. AIMOVIG [Suspect]
     Active Substance: ERENUMAB-AOOE
     Indication: PRODUCT USED FOR UNKNOWN INDICATION
     Dosage: 70 MILLIGRAM
     Route: 065
     Dates: start: 20181219, end: 20190611

REACTIONS (4)
  - Gestational trophoblastic detachment [Unknown]
  - Maternal exposure before pregnancy [Unknown]
  - Abortion missed [Unknown]
  - Migraine [Unknown]

NARRATIVE: CASE EVENT DATE: 20191009
